FAERS Safety Report 14315291 (Version 1)
Quarter: 2017Q4

REPORT INFORMATION
  Report Type: Spontaneous
  Country: US (occurrence: US)
  Receive Date: 20171221
  Receipt Date: 20171221
  Transmission Date: 20180321
  Serious: No
  Sender: FDA-Public Use
  Company Number: US-AUSTARPHARMA, LLC-2037595

PATIENT
  Age: 72 Year
  Sex: Female

DRUGS (1)
  1. ALENDRONATE SODIUM. [Suspect]
     Active Substance: ALENDRONATE SODIUM
     Indication: OSTEOPOROSIS
     Route: 048
     Dates: start: 20160808

REACTIONS (5)
  - Weight decreased [None]
  - Musculoskeletal disorder [None]
  - Chest pain [None]
  - Appetite disorder [None]
  - Abdominal pain [None]

NARRATIVE: CASE EVENT DATE: 201608
